FAERS Safety Report 9026479 (Version 2)
Quarter: 2013Q2

REPORT INFORMATION
  Report Type: Spontaneous
  Country: JP (occurrence: None)
  Receive Date: 20130110
  Receipt Date: 20130425
  Transmission Date: 20140414
  Serious: Yes (Hospitalization)
  Sender: FDA-Public Use
  Company Number: 0234761

PATIENT
  Age: 84 Year
  Sex: Male

DRUGS (4)
  1. TACHOSIL [Suspect]
     Indication: GASTRIC DISORDER
     Dosage: 1 SHEET OF REGULAR SIZE (1 SHEET OF REGULAR SIZE)
     Dates: start: 20121115
  2. BERIPLAST (BERIPLAST) [Concomitant]
  3. VENOGLOBLIN (IMMUNOGLOBULIN HUMAN NORMAL) [Concomitant]
  4. FINIBAX [Concomitant]

REACTIONS (1)
  - Pulmonary fistula [None]
